FAERS Safety Report 15256368 (Version 2)
Quarter: 2018Q4

REPORT INFORMATION
  Report Type: Spontaneous
  Country: IT (occurrence: IT)
  Receive Date: 20180808
  Receipt Date: 20181016
  Transmission Date: 20190204
  Serious: Yes (Other)
  Sender: FDA-Public Use
  Company Number: IT-COLLEGIUM PHARMACEUTICAL, INC.-IT-2018DEP001619

PATIENT
  Age: 76 Year
  Sex: Female

DRUGS (3)
  1. TRAMADOL HYDROCHLORIDE. [Suspect]
     Active Substance: TRAMADOL HYDROCHLORIDE
     Indication: PRODUCT USED FOR UNKNOWN INDICATION
     Dosage: UNK
  2. CARDIOASPIRINA [Concomitant]
     Active Substance: ASPIRIN
     Indication: PRODUCT USED FOR UNKNOWN INDICATION
     Dosage: 100 MG, UNK
  3. TAPENTADOL HYDROCHLORIDE [Suspect]
     Active Substance: TAPENTADOL HYDROCHLORIDE
     Indication: OSTEOARTHRITIS
     Dosage: 50 MG, QD
     Route: 048
     Dates: start: 20170704, end: 20170727

REACTIONS (3)
  - Bacterial vaginosis [Recovered/Resolved]
  - Fatigue [Recovered/Resolved]
  - Cheilitis [Recovered/Resolved]
